FAERS Safety Report 16341221 (Version 1)
Quarter: 2019Q2

REPORT INFORMATION
  Report Type: Spontaneous
  Country: US (occurrence: US)
  Receive Date: 20190522
  Receipt Date: 20190522
  Transmission Date: 20190711
  Serious: No
  Sender: FDA-Public Use
  Company Number: US-ASTRAZENECA-2019SE64082

PATIENT
  Sex: Male

DRUGS (2)
  1. BYDUREON [Suspect]
     Active Substance: EXENATIDE
     Dosage: 2.0MG UNKNOWN
     Route: 058
  2. BYDUREON [Suspect]
     Active Substance: EXENATIDE
     Dosage: BYDUREON VIALS 2MG UNKNOWN
     Route: 065

REACTIONS (5)
  - Pain [Unknown]
  - Nodule [Unknown]
  - Weight decreased [Unknown]
  - Abdominal pain upper [Unknown]
  - Product dispensing error [Unknown]
